FAERS Safety Report 7875168-5 (Version None)
Quarter: 2011Q4

REPORT INFORMATION
  Report Type: 
  Country: None (occurrence: None)
  Receive Date: 20111031
  Receipt Date: 20111020
  Transmission Date: 20120403
  Serious: No
  Sender: FDA-Public Use
  Company Number: US-BIOGENIDEC-2011BI040211

PATIENT
  Sex: Female

DRUGS (2)
  1. AVONEX [Suspect]
     Indication: MULTIPLE SCLEROSIS
     Route: 030
     Dates: start: 20090731
  2. IBUPROFEN (ADVIL) [Concomitant]
     Indication: PREMEDICATION

REACTIONS (2)
  - PARAESTHESIA [None]
  - MENOPAUSAL SYMPTOMS [None]
